FAERS Safety Report 17650373 (Version 1)
Quarter: 2020Q2

REPORT INFORMATION
  Report Type: Spontaneous
  Country: US (occurrence: US)
  Receive Date: 20200409
  Receipt Date: 20200409
  Transmission Date: 20200713
  Serious: Yes (Other)
  Sender: FDA-Public Use
  Company Number: US-PFIZER INC-2020144332

PATIENT
  Age: 47 Year
  Sex: Male
  Weight: 86.18 kg

DRUGS (2)
  1. DILANTIN [Suspect]
     Active Substance: PHENYTOIN
     Indication: SEIZURE
     Dosage: UNK
     Dates: start: 1997
  2. KEPPRA [Suspect]
     Active Substance: LEVETIRACETAM
     Indication: SEIZURE
     Dosage: 750 MG, 2X/DAY
     Route: 048
     Dates: start: 2017

REACTIONS (2)
  - Tooth loss [Unknown]
  - Jaw disorder [Unknown]
